FAERS Safety Report 15350040 (Version 1)
Quarter: 2018Q3

REPORT INFORMATION
  Report Type: Spontaneous
  Country: HR (occurrence: HR)
  Receive Date: 20180904
  Receipt Date: 20180904
  Transmission Date: 20181010
  Serious: Yes (Other)
  Sender: FDA-Public Use
  Company Number: HR-009507513-1808HRV011489

PATIENT
  Age: 53 Year
  Sex: Female

DRUGS (5)
  1. CARBIDOPA (+) LEVODOPA [Suspect]
     Active Substance: CARBIDOPA\LEVODOPA
     Dosage: 1 DF, TID
     Route: 048
     Dates: start: 20180719, end: 20180728
  2. CARBIDOPA (+) LEVODOPA [Suspect]
     Active Substance: CARBIDOPA\LEVODOPA
     Dosage: 1 DF, BID
     Route: 048
     Dates: start: 20180729, end: 20180804
  3. CARBIDOPA (+) LEVODOPA [Suspect]
     Active Substance: CARBIDOPA\LEVODOPA
     Dosage: 1.5 DF, QD (1 TABLET AT 6 H IN THE MORNING AND HALF TABLET AT 18 H IN THE EVENING)
     Route: 048
     Dates: start: 20180805, end: 20180809
  4. CARBIDOPA (+) LEVODOPA [Suspect]
     Active Substance: CARBIDOPA\LEVODOPA
     Indication: EXTRAPYRAMIDAL DISORDER
     Dosage: 1 DF, BID (1 TABLET AT 6 H IN THE MORNING AND ONE TABLET AT 18 H IN THE EVENING
     Route: 048
     Dates: start: 20180809
  5. CARBIDOPA (+) LEVODOPA [Suspect]
     Active Substance: CARBIDOPA\LEVODOPA
     Dosage: 0.5 DF, TID (FIRST 7 DAYS)
     Route: 048
     Dates: start: 20180710, end: 20180718

REACTIONS (9)
  - Hypothermia [Recovered/Resolved]
  - Contraindicated product administered [Unknown]
  - Hyperhidrosis [Recovered/Resolved]
  - Nausea [Recovered/Resolved]
  - Insomnia [Recovered/Resolved]
  - Feeling abnormal [Unknown]
  - Balance disorder [Not Recovered/Not Resolved]
  - Gait disturbance [Not Recovered/Not Resolved]
  - Chills [Recovered/Resolved]

NARRATIVE: CASE EVENT DATE: 20180720
